FAERS Safety Report 8810659 (Version 1)
Quarter: 2012Q4

REPORT INFORMATION
  Report Type: Spontaneous
  Country: US (occurrence: None)
  Receive Date: 20120920
  Receipt Date: 20120920
  Transmission Date: 20130627
  Serious: Yes (Hospitalization, Other)
  Sender: FDA-Public Use
  Company Number: ADR-2012-01713

PATIENT
  Sex: Male

DRUGS (3)
  1. LIORESAL INTRATHECAL (BACLOFEN INJECTION) [Suspect]
     Indication: SPASTICITY
  2. LIORESAL INTRATHECAL (BACLOFEN INJECTION) [Suspect]
     Indication: SPINAL CORD INJURY
  3. LIORESAL INTRATHECAL (BACLOFEN INJECTION) [Suspect]
     Indication: SPINAL CORD DISORDER

REACTIONS (5)
  - Gastric dilatation [None]
  - Allergy to metals [None]
  - Increased bronchial secretion [None]
  - Renal failure [None]
  - Respiratory failure [None]
